FAERS Safety Report 5704048-6 (Version None)
Quarter: 2008Q2

REPORT INFORMATION
  Report Type: 
  Country: None (occurrence: None)
  Receive Date: 20080414
  Receipt Date: 20080403
  Transmission Date: 20081010
  Serious: Yes (Other)
  Sender: FDA-Public Use
  Company Number: US-ROCHE-556885

PATIENT
  Age: 50 Year
  Sex: Male

DRUGS (4)
  1. PEGASYS [Suspect]
     Indication: HEPATITIS C
     Route: 065
     Dates: end: 20061110
  2. COPEGUS [Suspect]
     Indication: HEPATITIS C
     Route: 065
  3. NEUPOGEN [Concomitant]
  4. PROCRIT [Concomitant]

REACTIONS (4)
  - NODAL MARGINAL ZONE B-CELL LYMPHOMA [None]
  - PERIPHERAL VASCULAR DISORDER [None]
  - SPLENOMEGALY [None]
  - VIRAL LOAD INCREASED [None]
